FAERS Safety Report 12345665 (Version 2)
Quarter: 2016Q2

REPORT INFORMATION
  Report Type: Report from Study
  Country: PT (occurrence: PT)
  Receive Date: 20160509
  Receipt Date: 20160614
  Transmission Date: 20160815
  Serious: Yes (Other)
  Sender: FDA-Public Use
  Company Number: PT-ROCHE-1750924

PATIENT
  Age: 58 Year
  Sex: Male
  Weight: 83 kg

DRUGS (8)
  1. CYCLOPHOSPHAMIDE. [Concomitant]
     Active Substance: CYCLOPHOSPHAMIDE
     Dosage: 3RD CYCLE OF R-CVP
     Route: 065
     Dates: start: 20150216
  2. MABTHERA [Suspect]
     Active Substance: RITUXIMAB
     Indication: B-CELL LYMPHOMA
     Dosage: D1=D22?2ND CYCLE OF R-CVP
     Route: 058
     Dates: start: 20150122
  3. VINCRISTINE [Concomitant]
     Active Substance: VINCRISTINE
     Dosage: 3RD CYCLE OF R-CVP
     Route: 065
     Dates: start: 20150216
  4. PREDNISOLONE. [Concomitant]
     Active Substance: PREDNISOLONE
     Dosage: 2ND CYCLE OF R-CVP
     Route: 065
     Dates: start: 20150122
  5. PREDNISOLONE. [Concomitant]
     Active Substance: PREDNISOLONE
     Dosage: 3RD CYCLE OF R-CVP
     Route: 065
     Dates: start: 20150216
  6. MABTHERA [Suspect]
     Active Substance: RITUXIMAB
     Dosage: 3RD CYCLE OF R-CVP
     Route: 058
     Dates: start: 20150216, end: 20150220
  7. CYCLOPHOSPHAMIDE. [Concomitant]
     Active Substance: CYCLOPHOSPHAMIDE
     Dosage: 2ND CYCLE OF R-CVP
     Route: 065
     Dates: start: 20150122
  8. VINCRISTINE [Concomitant]
     Active Substance: VINCRISTINE
     Dosage: 2ND CYCLE OF R-CVP
     Route: 065
     Dates: start: 20150122

REACTIONS (7)
  - Injection site reaction [Recovered/Resolved]
  - Injection site reaction [Recovered/Resolved]
  - Rash macular [Recovered/Resolved]
  - Rash pruritic [Recovered/Resolved]
  - Dermatitis allergic [Recovered/Resolved]
  - Off label use [Unknown]
  - Product use issue [Unknown]

NARRATIVE: CASE EVENT DATE: 20150129
